FAERS Safety Report 12682732 (Version 1)
Quarter: 2016Q3

REPORT INFORMATION
  Report Type: Spontaneous
  Country: US (occurrence: US)
  Receive Date: 20160825
  Receipt Date: 20160825
  Transmission Date: 20161109
  Serious: No
  Sender: FDA-Public Use
  Company Number: US-ASTRAZENECA-2016SE88565

PATIENT
  Age: 40 Month
  Sex: Female
  Weight: 14.1 kg

DRUGS (8)
  1. PROBIOITIC OTC [Concomitant]
     Indication: CONSTIPATION
     Route: 065
  2. NEXIUM [Suspect]
     Active Substance: ESOMEPRAZOLE MAGNESIUM
     Indication: GASTROOESOPHAGEAL REFLUX DISEASE
     Route: 048
     Dates: start: 20160601
  3. ZANTAC [Concomitant]
     Active Substance: RANITIDINE HYDROCHLORIDE
  4. MIRALAX [Concomitant]
     Active Substance: POLYETHYLENE GLYCOL 3350
     Indication: CONSTIPATION
     Route: 065
     Dates: start: 201403
  5. PREVACID [Concomitant]
     Active Substance: LANSOPRAZOLE
  6. PROBIOITIC OTC [Concomitant]
     Indication: DIARRHOEA
     Route: 065
  7. CYPROHEPTINE [Concomitant]
     Indication: INCREASED APPETITE
     Route: 065
     Dates: start: 201602
  8. MIRALAX [Concomitant]
     Active Substance: POLYETHYLENE GLYCOL 3350
     Indication: ILL-DEFINED DISORDER
     Route: 065
     Dates: start: 201403

REACTIONS (5)
  - Abdominal discomfort [Unknown]
  - Drug intolerance [Unknown]
  - Vomiting [Not Recovered/Not Resolved]
  - Gastritis [Unknown]
  - Intentional product misuse [Not Recovered/Not Resolved]

NARRATIVE: CASE EVENT DATE: 201606
